FAERS Safety Report 20621162 (Version 2)
Quarter: 2022Q4

REPORT INFORMATION
  Report Type: Spontaneous
  Country: SE (occurrence: SE)
  Receive Date: 20220322
  Receipt Date: 20221220
  Transmission Date: 20230113
  Serious: Yes (Other)
  Sender: FDA-Public Use
  Company Number: SE-DENTSPLY-2022SCDP000061

PATIENT
  Age: 64 Year
  Sex: Male

DRUGS (3)
  1. EPINEPHRINE BITARTRATE\LIDOCAINE HYDROCHLORIDE [Suspect]
     Active Substance: EPINEPHRINE BITARTRATE\LIDOCAINE HYDROCHLORIDE
     Indication: Anaesthesia
     Dosage: 20 MILLIGRAM PER MILLILITRE, XYLOCAIN DENTAL ADRENALINE 20 MG / ML + 12.5 MICROGRAM / ML
     Route: 065
     Dates: start: 20180219, end: 20180219
  2. METFORMIN [Concomitant]
     Active Substance: METFORMIN HYDROCHLORIDE
     Indication: Type 2 diabetes mellitus
     Dosage: UNK
  3. INSULIN NOS [Concomitant]
     Active Substance: INSULIN NOS
     Indication: Type 2 diabetes mellitus
     Dosage: UNK

REACTIONS (6)
  - Arachnoiditis [Unknown]
  - Optic nerve infarction [None]
  - Papilloedema [None]
  - Visual impairment [None]
  - Retinal disorder [None]
  - Wrong dose [Unknown]

NARRATIVE: CASE EVENT DATE: 20180219
